FAERS Safety Report 22913055 (Version 3)
Quarter: 2024Q2

REPORT INFORMATION
  Report Type: Spontaneous
  Country: US (occurrence: None)
  Receive Date: 20230906
  Receipt Date: 20240604
  Transmission Date: 20240716
  Serious: Yes (Other)
  Sender: FDA-Public Use
  Company Number: US-ROCHE-3415460

PATIENT
  Sex: Female

DRUGS (1)
  1. RITUXAN [Suspect]
     Active Substance: RITUXIMAB
     Indication: Product used for unknown indication
     Dosage: THE PATIENT RECEIVED THE MOST RECENT DOSE ON 6/SEP/2023 AND 10/MAR/2023
     Route: 065

REACTIONS (2)
  - Maternal exposure during pregnancy [Unknown]
  - Neuromyelitis optica spectrum disorder [Unknown]
